FAERS Safety Report 13068553 (Version 3)
Quarter: 2019Q3

REPORT INFORMATION
  Report Type: Spontaneous
  Country: FR (occurrence: FR)
  Receive Date: 20161228
  Receipt Date: 20190723
  Transmission Date: 20191004
  Serious: Yes (Hospitalization)
  Sender: FDA-Public Use
  Company Number: FR-PFIZER INC-2016593251

PATIENT
  Age: 65 Year
  Sex: Male

DRUGS (15)
  1. OXALIPLATIN. [Suspect]
     Active Substance: OXALIPLATIN
     Dosage: UNK
     Route: 042
     Dates: start: 20161205, end: 20161205
  2. ATARAX [Suspect]
     Active Substance: HYDROXYZINE HYDROCHLORIDE
     Dosage: UNK
     Route: 048
     Dates: start: 20161210, end: 20161214
  3. SOLUPRED /00016217/ [Suspect]
     Active Substance: PREDNISOLONE SODIUM METAZOATE
     Dosage: UNK
     Route: 048
     Dates: start: 20161207, end: 20161209
  4. INNOHEP [Concomitant]
     Active Substance: TINZAPARIN SODIUM
  5. CEFTRIAXONE. [Suspect]
     Active Substance: CEFTRIAXONE
     Dosage: UNK
     Route: 042
     Dates: start: 20161210
  6. SOLU-MEDROL [Suspect]
     Active Substance: METHYLPREDNISOLONE SODIUM SUCCINATE
     Dosage: UNK
     Route: 042
     Dates: start: 20161205, end: 20161206
  7. OXYCODONE [Suspect]
     Active Substance: OXYCODONE
     Indication: PAIN
     Dosage: UNK
     Dates: start: 20161212
  8. EMEND [Suspect]
     Active Substance: APREPITANT
     Dosage: UNK
     Route: 048
     Dates: start: 20161205, end: 20161208
  9. PARACETAMOL [Suspect]
     Active Substance: ACETAMINOPHEN
     Dosage: UNK UNK, AS NEEDED
     Route: 065
     Dates: start: 20161210, end: 20161214
  10. PANTOPRAZOLE [Suspect]
     Active Substance: PANTOPRAZOLE
     Dosage: UNK
     Route: 048
     Dates: start: 20161210
  11. FLUOROURACIL. [Suspect]
     Active Substance: FLUOROURACIL
     Dosage: UNK
     Route: 042
     Dates: start: 20161205, end: 20161205
  12. VANCOMYCINE [Suspect]
     Active Substance: VANCOMYCIN
     Dosage: UNK
     Route: 042
     Dates: start: 20161212
  13. METRONIDAZOLE. [Suspect]
     Active Substance: METRONIDAZOLE
     Dosage: UNK
     Dates: start: 20161210
  14. LEVOFOLINATE CALCIUM [Suspect]
     Active Substance: LEVOLEUCOVORIN CALCIUM
     Dosage: UNK
     Route: 042
     Dates: start: 20161205, end: 20161205
  15. ZOPHREN /00955301/ [Suspect]
     Active Substance: ONDANSETRON
     Indication: NAUSEA
     Dosage: UNK
     Dates: start: 20161206, end: 20161209

REACTIONS (1)
  - Fixed eruption [Recovered/Resolved]

NARRATIVE: CASE EVENT DATE: 20161212
